FAERS Safety Report 10162366 (Version 1)
Quarter: 2014Q2

REPORT INFORMATION
  Report Type: Spontaneous
  Country: US (occurrence: US)
  Receive Date: 20140509
  Receipt Date: 20140509
  Transmission Date: 20141212
  Serious: Yes (Hospitalization, Other)
  Sender: FDA-Public Use
  Company Number: US-ABBVIE-14P-163-1232937-00

PATIENT
  Age: 43 Year
  Sex: Male

DRUGS (1)
  1. ANDROGEL [Suspect]
     Indication: BLOOD TESTOSTERONE DECREASED
     Dates: start: 201205, end: 201306

REACTIONS (13)
  - Myocardial infarction [Unknown]
  - Cerebrovascular accident [Unknown]
  - Blindness unilateral [Unknown]
  - Confusional state [Unknown]
  - Disease susceptibility [Unknown]
  - Injury [Unknown]
  - Pain [Unknown]
  - Economic problem [Unknown]
  - Economic problem [Unknown]
  - Injury [Unknown]
  - Injury [Unknown]
  - Asthenia [Unknown]
  - Emotional distress [Unknown]
